FAERS Safety Report 23258733 (Version 1)
Quarter: 2023Q4

REPORT INFORMATION
  Report Type: Spontaneous
  Country: US (occurrence: US)
  Receive Date: 20231204
  Receipt Date: 20231204
  Transmission Date: 20240110
  Serious: No
  Sender: FDA-Public Use
  Company Number: US-TAKEDA-2023TUS112872

PATIENT
  Age: 82 Year
  Sex: Male
  Weight: 63.8 kg

DRUGS (1)
  1. FEIBA NF [Suspect]
     Active Substance: ANTI-INHIBITOR COAGULANT COMPLEX
     Indication: Product used for unknown indication
     Dosage: 998 INTERNATIONAL UNIT, QD
     Route: 042
     Dates: start: 20231119, end: 20231119

REACTIONS (2)
  - Product quality issue [Recovered/Resolved]
  - Product preparation issue [Recovered/Resolved]

NARRATIVE: CASE EVENT DATE: 20231119
